FAERS Safety Report 25881969 (Version 1)
Quarter: 2025Q4

REPORT INFORMATION
  Report Type: Spontaneous
  Country: US (occurrence: US)
  Receive Date: 20251005
  Receipt Date: 20251005
  Transmission Date: 20260117
  Serious: No
  Sender: BAUSCH AND LOMB
  Company Number: US-BAUSCHBL-2025BNL029430

PATIENT
  Sex: Male

DRUGS (14)
  1. KETOTIFEN [Suspect]
     Active Substance: KETOTIFEN
     Indication: Mast cell activation syndrome
  2. CETIRIZINE [Suspect]
     Active Substance: CETIRIZINE HYDROCHLORIDE
     Indication: Mast cell activation syndrome
  3. NIZATIDINE [Suspect]
     Active Substance: NIZATIDINE
     Indication: Mast cell activation syndrome
  4. LUTEOLIN [Suspect]
     Active Substance: LUTEOLIN
     Indication: Mast cell activation syndrome
  5. ALPRAZOLAM [Suspect]
     Active Substance: ALPRAZOLAM
     Indication: Mast cell activation syndrome
     Dosage: STABLE LOW DOSING, NO SIGN OF ADDICTION
  6. TEMAZEPAM [Suspect]
     Active Substance: TEMAZEPAM
     Indication: Mast cell activation syndrome
     Dosage: STABLE LOW DOSING, NO SIGN OF ADDICTION
  7. GLYCOPYRROLATE [Suspect]
     Active Substance: GLYCOPYRROLATE
     Indication: Mast cell activation syndrome
  8. PALMIDROL [Concomitant]
     Active Substance: PALMIDROL
     Indication: Mast cell activation syndrome
  9. CELECOXIB [Concomitant]
     Active Substance: CELECOXIB
     Indication: Mast cell activation syndrome
  10. MONTELUKAST [Concomitant]
     Active Substance: MONTELUKAST
     Indication: Mast cell activation syndrome
  11. OMALIZUMAB [Concomitant]
     Active Substance: OMALIZUMAB
     Indication: Mast cell activation syndrome
  12. QUERCETIN [Concomitant]
     Active Substance: QUERCETIN
     Indication: Mast cell activation syndrome
  13. MULTIPLE CANNABINOIDS [Concomitant]
     Indication: Mast cell activation syndrome
     Dosage: (CBD +/- THC)
  14. CROMOLYN [Concomitant]
     Active Substance: CROMOLYN
     Indication: Mast cell activation syndrome

REACTIONS (1)
  - Therapy partial responder [Unknown]
